FAERS Safety Report 4492439-3 (Version None)
Quarter: 2004Q4

REPORT INFORMATION
  Report Type: 
  Country: None (occurrence: None)
  Receive Date: 20041029
  Receipt Date: 20041019
  Transmission Date: 20050328
  Serious: Yes (Other)
  Sender: FDA-Public Use
  Company Number: 2004080966

PATIENT
  Age: 57 Year
  Sex: Male

DRUGS (3)
  1. TAHOR (ATORVSTATIN) [Suspect]
     Indication: HYPERCHOLESTEROLAEMIA
     Dosage: 20 MG
     Dates: start: 20010101
  2. METFORMIN HCL [Concomitant]
  3. BENFLUOREX HYDROCHLORIDE (BENFLUOREX HYDROCHLORIDE) [Concomitant]

REACTIONS (5)
  - BIOPSY LIVER ABNORMAL [None]
  - COLON CANCER [None]
  - ECHOGRAPHY ABNORMAL [None]
  - HEPATIC STEATOSIS [None]
  - LIVER DISORDER [None]
